FAERS Safety Report 18335694 (Version 2)
Quarter: 2020Q4

REPORT INFORMATION
  Report Type: Spontaneous
  Country: US (occurrence: US)
  Receive Date: 20201001
  Receipt Date: 20201016
  Transmission Date: 20210113
  Serious: No
  Sender: FDA-Public Use
  Company Number: US-TEVA-2020-US-1833188

PATIENT
  Age: 30 Year
  Sex: Female

DRUGS (3)
  1. LIDOCAINE PATCH 5% [Suspect]
     Active Substance: LIDOCAINE
     Dosage: APPLICATION TO DAYTIME HOURS
     Route: 065
     Dates: start: 202009, end: 20200913
  2. LIDOCAINE PATCH 5% [Suspect]
     Active Substance: LIDOCAINE
     Dosage: WORE THE PRODUCT FOR 12 HOURS TO BED
     Route: 065
     Dates: start: 20200903
  3. LIDOCAINE PATCH 5% [Suspect]
     Active Substance: LIDOCAINE
     Route: 065
     Dates: start: 20200921

REACTIONS (3)
  - Application site mass [Unknown]
  - Application site dryness [Unknown]
  - Application site injury [Unknown]

NARRATIVE: CASE EVENT DATE: 202009
